FAERS Safety Report 6190476-4 (Version None)
Quarter: 2009Q2

REPORT INFORMATION
  Report Type: 
  Country: None (occurrence: None)
  Receive Date: 20090514
  Receipt Date: 20090507
  Transmission Date: 20091009
  Serious: Yes (Disabling, Other)
  Sender: FDA-Public Use
  Company Number: CA-JNJFOC-20090406249

PATIENT
  Age: 76 Year
  Sex: Male

DRUGS (6)
  1. REMINYL ER [Suspect]
     Indication: DEMENTIA ALZHEIMER'S TYPE
     Route: 048
     Dates: start: 20070820
  2. PALAFER [Concomitant]
     Indication: ANAEMIA
     Route: 048
  3. ZOCOR [Concomitant]
     Indication: BLOOD CHOLESTEROL
     Route: 048
  4. SYNTHROID [Concomitant]
     Indication: THYROID DISORDER
     Dosage: STARTED IN 2000 OR BEFORE
     Route: 048
  5. NORTRIPTYLINE HCL [Concomitant]
     Indication: SLEEP DISORDER
     Route: 048
  6. CALCITE [Concomitant]
     Indication: OSTEOPOROSIS
     Route: 048

REACTIONS (2)
  - BACK PAIN [None]
  - OSTEOPENIA [None]
